FAERS Safety Report 15899619 (Version 1)
Quarter: 2019Q1

REPORT INFORMATION
  Report Type: Spontaneous
  Country: US (occurrence: US)
  Receive Date: 20190131
  Receipt Date: 20190131
  Transmission Date: 20190417
  Serious: Yes (Other)
  Sender: FDA-Public Use
  Company Number: None

PATIENT
  Age: 80 Year
  Sex: Female
  Weight: 60.75 kg

DRUGS (2)
  1. ALIMTA [Concomitant]
     Active Substance: PEMETREXED DISODIUM
     Dates: start: 20190102, end: 20190123
  2. CARBOPLATIN. [Suspect]
     Active Substance: CARBOPLATIN
     Indication: LUNG NEOPLASM MALIGNANT
     Dosage: ?          OTHER FREQUENCY:EVERY 3 WEEKS;?
     Route: 041
     Dates: start: 20190102, end: 20190123

REACTIONS (7)
  - Speech disorder [None]
  - Unevaluable event [None]
  - Dyspnoea [None]
  - Ear swelling [None]
  - Rash erythematous [None]
  - Lip swelling [None]
  - Swelling face [None]

NARRATIVE: CASE EVENT DATE: 20190123
